FAERS Safety Report 15790570 (Version 1)
Quarter: 2019Q1

REPORT INFORMATION
  Report Type: Spontaneous
  Country: US (occurrence: US)
  Receive Date: 20190104
  Receipt Date: 20190104
  Transmission Date: 20190417
  Serious: Yes (Hospitalization, Other)
  Sender: FDA-Public Use
  Company Number: US-SA-2019SA001249

PATIENT
  Age: 56 Year
  Sex: Male

DRUGS (6)
  1. CYCLOPHOSPHAMIDE. [Suspect]
     Active Substance: CYCLOPHOSPHAMIDE
     Indication: B-CELL LYMPHOMA
     Dosage: UNK UNK, QCY
  2. PREDNISONE. [Suspect]
     Active Substance: PREDNISONE
     Indication: B-CELL LYMPHOMA
     Dosage: UNK UNK, QCY
  3. DOXORUBICIN [Suspect]
     Active Substance: DOXORUBICIN
     Indication: B-CELL LYMPHOMA
     Dosage: UNK UNK, QCY
  4. RITUXIMAB. [Suspect]
     Active Substance: RITUXIMAB
     Indication: B-CELL LYMPHOMA
     Dosage: UNK UNK, QCY
  5. RASBURICASE [Suspect]
     Active Substance: RASBURICASE
     Indication: TUMOUR LYSIS SYNDROME
     Dosage: UNK
  6. VINCRISTINE SULFATE. [Suspect]
     Active Substance: VINCRISTINE SULFATE
     Indication: B-CELL LYMPHOMA
     Dosage: UNK UNK, QCY

REACTIONS (18)
  - Pigment nephropathy [Unknown]
  - Dizziness [Unknown]
  - Acute kidney injury [Unknown]
  - Tachycardia [Unknown]
  - Respiratory distress [Unknown]
  - Blood phosphorus increased [Recovered/Resolved]
  - Haemolytic anaemia [Unknown]
  - Blood uric acid increased [Recovered/Resolved]
  - Asthenia [Unknown]
  - Chromaturia [Unknown]
  - Blood urine present [Unknown]
  - Acute respiratory distress syndrome [Unknown]
  - Abdominal distension [Unknown]
  - Hyperkalaemia [Recovered/Resolved]
  - Tumour lysis syndrome [Recovered/Resolved]
  - Renal tubular necrosis [Unknown]
  - Methaemoglobinaemia [Unknown]
  - Dyspnoea [Unknown]
